FAERS Safety Report 6748764-6 (Version None)
Quarter: 2010Q2

REPORT INFORMATION
  Report Type: 
  Country: None (occurrence: None)
  Receive Date: 20100601
  Receipt Date: 20100519
  Transmission Date: 20101027
  Serious: Yes (Other)
  Sender: FDA-Public Use
  Company Number: PHHY2010JP32697

PATIENT
  Age: 63 Year

DRUGS (1)
  1. GLEEVEC [Suspect]
     Indication: ACUTE LYMPHOCYTIC LEUKAEMIA
     Dosage: 600 MG, QD
     Route: 048

REACTIONS (5)
  - ANAEMIA [None]
  - NEUTROPENIA [None]
  - OEDEMA [None]
  - PLEURAL EFFUSION [None]
  - THROMBOCYTOPENIA [None]
